FAERS Safety Report 4439518-4 (Version None)
Quarter: 2004Q3

REPORT INFORMATION
  Report Type: 
  Country: None (occurrence: None)
  Receive Date: 20040830
  Receipt Date: 20040815
  Transmission Date: 20050211
  Serious: Yes (Hospitalization, Other)
  Sender: FDA-Public Use
  Company Number: 186897

PATIENT
  Age: 66 Year
  Sex: Female

DRUGS (1)
  1. AVONEX [Suspect]
     Indication: MULTIPLE SCLEROSIS
     Dates: start: 19980101, end: 20030901

REACTIONS (9)
  - ARTHRALGIA [None]
  - BLOOD CALCIUM ABNORMAL [None]
  - DERMATOMYOSITIS [None]
  - METASTASIS [None]
  - MUSCULAR WEAKNESS [None]
  - OEDEMA [None]
  - OVARIAN CANCER [None]
  - PARANEOPLASTIC SYNDROME [None]
  - RASH [None]
